FAERS Safety Report 4342062-6 (Version None)
Quarter: 2004Q2

REPORT INFORMATION
  Report Type: 
  Country: None (occurrence: None)
  Receive Date: 20040415
  Receipt Date: 20040405
  Transmission Date: 20050107
  Serious: Yes (Other)
  Sender: FDA-Public Use
  Company Number: 2004023344

PATIENT
  Age: 65 Year
  Sex: Male
  Weight: 72.5755 kg

DRUGS (6)
  1. LIPITOR [Suspect]
     Indication: BLOOD CHOLESTEROL INCREASED
     Dosage: 20 (DAILY), ORAL
     Route: 048
     Dates: end: 20040101
  2. VIAGRA [Suspect]
     Indication: ERECTILE DYSFUNCTION
     Dosage: 50 (PRN), ORAL
     Route: 048
     Dates: start: 20030101, end: 20030101
  3. VARDENAFIL HYDROCHLORIDE (VARDENAFIL HYDROCHLORIDE) [Suspect]
     Indication: ERECTILE DYSFUNCTION
     Dates: start: 20030101
  4. NAPROXEN [Concomitant]
  5. ACETYLSALICYLIC ACID SRT [Concomitant]
  6. CLONAZEPAM [Concomitant]

REACTIONS (9)
  - CORONARY ARTERY DISEASE [None]
  - CORONARY ARTERY SURGERY [None]
  - EJACULATION DISORDER [None]
  - ERECTILE DYSFUNCTION [None]
  - HYPOACUSIS [None]
  - MALAISE [None]
  - MALE ORGASMIC DISORDER [None]
  - RETINOPATHY [None]
  - SCOTOMA [None]
